FAERS Safety Report 8826024 (Version 1)
Quarter: 2012Q4

REPORT INFORMATION
  Report Type: 
  Country: US (occurrence: US)
  Receive Date: 20121005
  Receipt Date: 20121005
  Transmission Date: 20130627
  Serious: Yes (Other)
  Sender: FDA-Public Use
  Company Number: US-ROCHE-1133051

PATIENT
  Sex: Female

DRUGS (14)
  1. RITUXAN [Suspect]
     Indication: NON-HODGKIN^S LYMPHOMA REFRACTORY
     Route: 065
  2. DOXEPIN [Concomitant]
  3. ZANTAC [Concomitant]
  4. CYTOTEC [Concomitant]
  5. DECADRON [Concomitant]
  6. LASIX [Concomitant]
  7. POTASSIUM [Concomitant]
  8. SENOKOT [Concomitant]
  9. FOLIC ACID [Concomitant]
  10. ZOLOFT [Concomitant]
  11. COUMADIN [Concomitant]
  12. LANOXIN [Concomitant]
  13. MEPERGAN [Concomitant]
     Route: 065
  14. PROCRIT [Concomitant]

REACTIONS (9)
  - Haemolytic anaemia [Unknown]
  - Asthenia [Unknown]
  - Chromaturia [Unknown]
  - Oedema peripheral [Unknown]
  - Tenderness [Unknown]
  - Erythema [Unknown]
  - Haemorrhoids [Unknown]
  - Deep vein thrombosis [Unknown]
  - Pneumonia [Unknown]
